FAERS Safety Report 8392699-2 (Version None)
Quarter: 2012Q2

REPORT INFORMATION
  Report Type: 
  Country: None (occurrence: None)
  Receive Date: 20120529
  Receipt Date: 20120518
  Transmission Date: 20120825
  Serious: Yes (Other)
  Sender: FDA-Public Use
  Company Number: US-ASTRAZENECA-2011SE53707

PATIENT
  Age: 61 Year
  Sex: Female
  Weight: 86.2 kg

DRUGS (18)
  1. SEROQUEL XR [Suspect]
     Indication: DEPRESSION
     Route: 048
     Dates: start: 20101001
  2. ESTRACE [Concomitant]
     Indication: HORMONE REPLACEMENT THERAPY
     Route: 048
  3. MOUTHWASH OTC [Concomitant]
  4. SEROQUEL XR [Suspect]
     Indication: MAJOR DEPRESSION
     Route: 048
     Dates: start: 20101001
  5. SEROQUEL XR [Suspect]
     Route: 048
     Dates: start: 20120508
  6. ATACAND HCT [Suspect]
     Indication: BLOOD PRESSURE ABNORMAL
     Dosage: 32/? MG DAILY
     Route: 048
  7. SEROQUEL XR [Suspect]
     Route: 048
     Dates: start: 20120508
  8. SEROQUEL XR [Suspect]
     Route: 048
  9. MOUTHSPRAY [Concomitant]
  10. KLONOPIN [Concomitant]
  11. NEXIUM [Suspect]
     Indication: GASTROOESOPHAGEAL REFLUX DISEASE
     Route: 048
  12. SEROQUEL XR [Suspect]
     Route: 048
     Dates: start: 20120508
  13. SALINE SOLUTION FOR NOSE [Concomitant]
  14. CYMBALTA [Concomitant]
  15. SEROQUEL XR [Suspect]
     Indication: ANXIETY
     Route: 048
     Dates: start: 20101001
  16. SEROQUEL XR [Suspect]
     Route: 048
  17. SEROQUEL XR [Suspect]
     Route: 048
  18. CLODIPINE [Concomitant]
     Indication: ANXIETY
     Route: 048

REACTIONS (14)
  - FEELING OF DESPAIR [None]
  - NASOPHARYNGITIS [None]
  - CHAPPED LIPS [None]
  - NASAL DRYNESS [None]
  - INTERVERTEBRAL DISC PROTRUSION [None]
  - DEPRESSION [None]
  - TONGUE HAEMORRHAGE [None]
  - NASAL CONGESTION [None]
  - LIP HAEMORRHAGE [None]
  - MALAISE [None]
  - DRY MOUTH [None]
  - SUICIDAL IDEATION [None]
  - TONGUE DISORDER [None]
  - ORAL PAIN [None]
